FAERS Safety Report 9534915 (Version 1)
Quarter: 2013Q3

REPORT INFORMATION
  Report Type: Spontaneous
  Country: US (occurrence: US)
  Receive Date: 20130918
  Receipt Date: 20130918
  Transmission Date: 20140515
  Serious: Yes (Other)
  Sender: FDA-Public Use
  Company Number: US-NAPPMUNDI-USA-2011-0079920

PATIENT
  Sex: Male

DRUGS (1)
  1. BUTRANS [Suspect]
     Indication: PRODUCT USED FOR UNKNOWN INDICATION
     Dosage: 20 MCG, Q1H
     Route: 062
     Dates: start: 201109

REACTIONS (6)
  - Application site burn [Unknown]
  - Application site rash [Unknown]
  - Application site discharge [Unknown]
  - Application site dryness [Unknown]
  - Application site pruritus [Unknown]
  - Device leakage [Unknown]
